FAERS Safety Report 16315748 (Version 1)
Quarter: 2019Q2

REPORT INFORMATION
  Report Type: Spontaneous
  Country: IN (occurrence: IN)
  Receive Date: 20190515
  Receipt Date: 20190515
  Transmission Date: 20190711
  Serious: Yes (Other)
  Sender: FDA-Public Use
  Company Number: PHHY2019IN103590

PATIENT
  Age: 20 Year
  Sex: Male

DRUGS (2)
  1. DIFLUPREDNATE [Suspect]
     Active Substance: DIFLUPREDNATE
     Indication: PRODUCT USED FOR UNKNOWN INDICATION
     Dosage: (SIX TIMES IN A DAY IN THE LEFT EYE)
     Route: 061
  2. MOXIFLOXACIN. [Suspect]
     Active Substance: MOXIFLOXACIN
     Indication: PRODUCT USED FOR UNKNOWN INDICATION
     Dosage: SIX TIMES IN A DAY IN THE LEFT EYE
     Route: 061

REACTIONS (1)
  - Intraocular pressure increased [Recovering/Resolving]
